FAERS Safety Report 9523254 (Version 2)
Quarter: 2013Q3

REPORT INFORMATION
  Report Type: Report from Study
  Country: DE (occurrence: DE)
  Receive Date: 20130913
  Receipt Date: 20130913
  Transmission Date: 20140515
  Serious: Yes (Other)
  Sender: FDA-Public Use
  Company Number: CHPA2013DE013931

PATIENT
  Age: 56 Year
  Sex: Female
  Weight: 80 kg

DRUGS (8)
  1. DICLOFENAC POTASSIUM [Suspect]
     Indication: ARTHRALGIA
     Dosage: 1-2 QD PRN
     Route: 048
  2. DICLOFENAC POTASSIUM [Suspect]
     Indication: MUSCULOSKELETAL PAIN
  3. L-THYROXIN [Concomitant]
     Dosage: 125MICRO-G OR 150MICRO-G PRN
     Dates: start: 200808
  4. PREDNISOLON [Concomitant]
     Dosage: 10MG/5MG
     Dates: start: 201205
  5. AZATHIOPRIN [Concomitant]
     Dosage: 50 MG, UNK
     Dates: start: 201205
  6. PANTOPRAZOL [Concomitant]
     Dosage: 20 MG, UNK
     Dates: start: 201205
  7. CHOLECALCIFEROL [Concomitant]
     Dosage: 1000 IU, UNK
     Dates: start: 201206
  8. IBUFLAM [Concomitant]
     Dosage: 600 UNK, UNK

REACTIONS (6)
  - Dermatomyositis [Unknown]
  - Osteoarthritis [Unknown]
  - Fracture [Unknown]
  - Chondropathy [Unknown]
  - Hand fracture [Unknown]
  - Off label use [Unknown]
